FAERS Safety Report 8817126 (Version 1)
Quarter: 2012Q4

REPORT INFORMATION
  Report Type: Spontaneous
  Country: US (occurrence: None)
  Receive Date: 20121003
  Receipt Date: 20121003
  Transmission Date: 20130627
  Serious: Yes (Other)
  Sender: FDA-Public Use
  Company Number: None

PATIENT
  Sex: Female
  Weight: 129.28 kg

DRUGS (2)
  1. ZESTORETIC [Suspect]
     Indication: HYPERTENSION
     Dates: start: 20071116
  2. VERAPAMIL EXTENDED RELEASE [Suspect]
     Indication: HYPERTENSION

REACTIONS (4)
  - Drug ineffective [None]
  - Headache [None]
  - Dizziness [None]
  - Nausea [None]
